FAERS Safety Report 8132557-1 (Version None)
Quarter: 2012Q1

REPORT INFORMATION
  Report Type: 
  Country: None (occurrence: None)
  Receive Date: 20120213
  Receipt Date: 20120208
  Transmission Date: 20120608
  Serious: Yes (Hospitalization)
  Sender: FDA-Public Use
  Company Number: FR-PFIZER INC-K200800440

PATIENT
  Age: 32 Year
  Sex: Male

DRUGS (12)
  1. VANCOMYCIN [Suspect]
     Dosage: UNK, UNK
     Route: 042
     Dates: start: 20080127, end: 20080219
  2. NEORECORMON [Concomitant]
     Indication: ANAEMIA
     Dosage: 5000 IU, 1X/DAY
     Route: 058
     Dates: start: 20030901, end: 20080101
  3. TAMOXIFEN CITRATE [Suspect]
     Dosage: 20 MG, 1X/DAY
     Route: 048
     Dates: start: 20080219, end: 20080303
  4. OFLOXACIN [Suspect]
     Indication: PERITONITIS SCLEROSING
     Dosage: UNK, UNK
     Route: 048
     Dates: start: 20080125, end: 20080126
  5. IMIPENEM AND CILASTATIN SODIUM [Suspect]
     Indication: PERITONITIS SCLEROSING
     Dosage: UNK
     Dates: start: 20080130, end: 20080219
  6. KAYEXALATE [Concomitant]
     Dosage: UNK
  7. CALCIDIA [Concomitant]
     Dosage: UNK
  8. TENORMIN [Suspect]
     Dosage: UNK
     Route: 048
  9. AMLODIPINE BESYLATE [Suspect]
     Dosage: UNK
     Route: 048
  10. RENAGEL /01459902/ [Concomitant]
     Dosage: UNK
     Route: 048
  11. RAMIPRIL [Suspect]
     Dosage: UNK
     Route: 048
  12. FOLIC ACID [Concomitant]
     Dosage: UNK

REACTIONS (2)
  - APLASTIC ANAEMIA [None]
  - PERITONITIS SCLEROSING [None]
